FAERS Safety Report 5817512-6 (Version None)
Quarter: 2008Q3

REPORT INFORMATION
  Report Type: 
  Country: None (occurrence: None)
  Receive Date: 20080722
  Receipt Date: 20080625
  Transmission Date: 20090109
  Serious: No
  Sender: FDA-Public Use
  Company Number: US-BAYER-200812605BCC

PATIENT
  Age: 18 Year
  Sex: Male
  Weight: 73 kg

DRUGS (2)
  1. ALEVE [Suspect]
     Indication: MUSCLE STRAIN
     Dosage: UNIT DOSE: 220 MG
     Route: 048
     Dates: start: 20080623
  2. ALEVE [Suspect]
     Route: 048
     Dates: start: 20080624

REACTIONS (2)
  - ABDOMINAL PAIN UPPER [None]
  - NAUSEA [None]
